FAERS Safety Report 5269307-2 (Version None)
Quarter: 2007Q1

REPORT INFORMATION
  Report Type: 
  Country: None (occurrence: None)
  Receive Date: 20070319
  Receipt Date: 20070307
  Transmission Date: 20070707
  Serious: Yes (Disabling)
  Sender: FDA-Public Use
  Company Number: DE-PFIZER INC-2007015651

PATIENT
  Age: 32 Year
  Sex: Female
  Weight: 70 kg

DRUGS (3)
  1. LYRICA [Suspect]
     Indication: NEURALGIA
     Dosage: DAILY DOSE:75MG
     Route: 048
  2. LYRICA [Suspect]
     Indication: PAIN
  3. CONTRACEPTIVE, UNSPECIFIED [Concomitant]

REACTIONS (1)
  - BREAST ENLARGEMENT [None]
